FAERS Safety Report 15434811 (Version 1)
Quarter: 2018Q3

REPORT INFORMATION
  Report Type: Spontaneous
  Country: US (occurrence: US)
  Receive Date: 20180922
  Receipt Date: 20180922
  Transmission Date: 20181010
  Serious: Yes (Life-Threatening, Hospitalization)
  Sender: FDA-Public Use
  Company Number: None

PATIENT
  Age: 59 Year
  Sex: Male
  Weight: 96.75 kg

DRUGS (8)
  1. VICTOZA [Concomitant]
     Active Substance: LIRAGLUTIDE
  2. LANTUS [Concomitant]
     Active Substance: INSULIN GLARGINE
  3. AMOXICILLIN AND CLAVULANATE POTASSIUM [Suspect]
     Active Substance: AMOXICILLIN\CLAVULANATE POTASSIUM
     Indication: SINUSITIS
     Dosage: ?          QUANTITY:1 DF DOSAGE FORM;?
     Route: 048
     Dates: start: 20180920, end: 20180920
  4. NOVOLOG [Concomitant]
     Active Substance: INSULIN ASPART
  5. ROSUVASTATIN. [Concomitant]
     Active Substance: ROSUVASTATIN
  6. METFORMIN [Concomitant]
     Active Substance: METFORMIN HYDROCHLORIDE
  7. LOW DOSE ASPIRIN [Concomitant]
     Active Substance: ASPIRIN
  8. LISINOPRIL. [Concomitant]
     Active Substance: LISINOPRIL

REACTIONS (7)
  - Loss of consciousness [None]
  - Pharyngeal oedema [None]
  - Foaming at mouth [None]
  - Pruritus [None]
  - Lip swelling [None]
  - Seizure [None]
  - Swollen tongue [None]

NARRATIVE: CASE EVENT DATE: 20180920
